FAERS Safety Report 18363637 (Version 2)
Quarter: 2020Q4

REPORT INFORMATION
  Report Type: Spontaneous
  Country: FR (occurrence: FR)
  Receive Date: 20201009
  Receipt Date: 20201017
  Transmission Date: 20210114
  Serious: Yes (Death, Life-Threatening, Hospitalization, Other)
  Sender: FDA-Public Use
  Company Number: FR-AUROBINDO-AUR-APL-2020-049320

PATIENT
  Age: 18 Year
  Sex: Female

DRUGS (31)
  1. NORDAZEPAM [Concomitant]
     Active Substance: NORDAZEPAM
     Indication: PRODUCT USED FOR UNKNOWN INDICATION
     Dosage: UNK
     Route: 065
  2. DIAZEPAM. [Interacting]
     Active Substance: DIAZEPAM
     Indication: PSYCHIATRIC SYMPTOM
     Dosage: 30 MILLIGRAM, ONCE A DAY (1.1.2)
     Route: 065
  3. FORLAX [Interacting]
     Active Substance: POLYETHYLENE GLYCOL 4000
     Dosage: 1 DOSAGE FORM, ONCE A DAY (1 PER DAY INTERMITTENTLY)
     Route: 065
  4. VALIUM [Interacting]
     Active Substance: DIAZEPAM
     Indication: PSYCHIATRIC SYMPTOM
     Dosage: 12 DOSAGE FORM, ONCE A DAY (40 MG)
     Route: 048
  5. VALIUM [Interacting]
     Active Substance: DIAZEPAM
     Dosage: 40 MILLIGRAM, ONCE A DAY (10 MG (1,1,2) DAILY
     Route: 065
  6. ATARAX [Concomitant]
     Active Substance: HYDROXYZINE HYDROCHLORIDE
     Dosage: 50 MILLIGRAM, 3 TIMES A DAY (25 MG (2,2,2) DAILY)
     Route: 065
  7. DIAZEPAM. [Interacting]
     Active Substance: DIAZEPAM
     Dosage: 12 DOSAGE FORM
     Route: 048
  8. NOZINAN [Interacting]
     Active Substance: LEVOMEPROMAZINE
     Indication: PSYCHIATRIC SYMPTOM
     Dosage: 200 MILLIGRAM, ONCE A DAY (4 PERCENT)
     Route: 048
  9. DIAZEPAM. [Interacting]
     Active Substance: DIAZEPAM
     Dosage: 10 MILLIGRAM, 3 TIMES A DAY
     Route: 065
  10. HYDROXYZINE [Interacting]
     Active Substance: HYDROXYZINE HYDROCHLORIDE
     Indication: PRODUCT USED FOR UNKNOWN INDICATION
     Dosage: 25 MILLIGRAM, 3 TIMES A DAY
     Route: 048
  11. PHLOROGLUCINOL [Interacting]
     Active Substance: PHLOROGLUCINOL
     Indication: PRODUCT USED FOR UNKNOWN INDICATION
     Dosage: UNK (AS NECESSARY)
     Route: 065
  12. DOLIPRANE [Interacting]
     Active Substance: ACETAMINOPHEN
     Dosage: 500 MILLIGRAM, ONCE A DAY
     Route: 065
  13. LEPONEX [Interacting]
     Active Substance: CLOZAPINE
     Indication: PSYCHIATRIC SYMPTOM
     Dosage: 100 MILLIGRAM, 3 TIMES A DAY
     Route: 065
  14. LEPONEX [Interacting]
     Active Substance: CLOZAPINE
     Indication: PSYCHOTIC DISORDER
     Dosage: 300 MILLIGRAM, ONCE A DAY (100 MG, TID)
     Route: 048
     Dates: start: 201305
  15. OXYBUTYNIN HYDROCHLORIDE [Interacting]
     Active Substance: OXYBUTYNIN CHLORIDE
     Dosage: 5 MILLIGRAM, 3 TIMES A DAY
     Route: 065
  16. CLOZAPINE TABLET [Suspect]
     Active Substance: CLOZAPINE
     Indication: PSYCHIATRIC SYMPTOM
     Dosage: 100 MILLIGRAM, 3 TIMES A DAY
     Route: 048
     Dates: start: 201305
  17. DOLIPRANE [Interacting]
     Active Substance: ACETAMINOPHEN
     Dosage: 200 MILLIGRAM (QD2SDO (0,02) )
     Route: 065
  18. ATARAX [Concomitant]
     Active Substance: HYDROXYZINE HYDROCHLORIDE
     Indication: PSYCHIATRIC SYMPTOM
     Dosage: 75 MILLIGRAM, ONCE A DAY (25 MG, TID2SDO)
     Route: 048
  19. ATARAX [Interacting]
     Active Substance: HYDROXYZINE HYDROCHLORIDE
     Indication: PRODUCT USED FOR UNKNOWN INDICATION
     Dosage: 150 MILLIGRAM, ONCE A DAY
     Route: 048
  20. DRIPTANE [Interacting]
     Active Substance: OXYBUTYNIN
     Dosage: 4 DOSAGE FORM, ONCE A DAY (1,1,2)
     Route: 065
  21. OXYBUTYNIN HYDROCHLORIDE [Interacting]
     Active Substance: OXYBUTYNIN CHLORIDE
     Indication: PSYCHIATRIC SYMPTOM
     Dosage: 4 DOSAGE FORM, 3 TIMES A DAY
     Route: 048
  22. HYDROXYZINE [Interacting]
     Active Substance: HYDROXYZINE HYDROCHLORIDE
     Dosage: 50 MILLIGRAM, 0.33 DAY
     Route: 048
  23. DOLIPRANE [Interacting]
     Active Substance: ACETAMINOPHEN
     Indication: PSYCHIATRIC SYMPTOM
     Dosage: 1000 MILLIGRAM, ONCE A DAY (500 MG (0,0,2) DAILY
     Route: 048
  24. DRIPTANE [Interacting]
     Active Substance: OXYBUTYNIN
     Indication: PSYCHIATRIC SYMPTOM
     Dosage: 20 MILLIGRAM, ONCE A DAY (5 MG (1,1,2) DAILY
     Route: 048
  25. FORLAX [Interacting]
     Active Substance: POLYETHYLENE GLYCOL 4000
     Dosage: UNK, PRN
     Route: 065
  26. LEVOMEPROMAZIN [Interacting]
     Active Substance: LEVOMEPROMAZINE
     Indication: PSYCHIATRIC SYMPTOM
     Dosage: 200 MILLIGRAM
     Route: 048
  27. OXYBUTYNIN HYDROCHLORIDE [Interacting]
     Active Substance: OXYBUTYNIN CHLORIDE
     Dosage: 20 MILLIGRAM
     Route: 048
  28. SPASFON (PHLOROGLUCINOL) [Interacting]
     Active Substance: PHLOROGLUCINOL
     Indication: PSYCHIATRIC SYMPTOM
     Dosage: 1 DOSAGE FORM, ONCE A DAY (INTERMITTENTLY)
     Route: 048
  29. HYDROXYZINE [Interacting]
     Active Substance: HYDROXYZINE HYDROCHLORIDE
     Dosage: 150 MILLIGRAM
     Route: 048
  30. FORLAX [Interacting]
     Active Substance: POLYETHYLENE GLYCOL 4000
     Indication: PSYCHIATRIC SYMPTOM
     Dosage: 10 GRAM, ONCE A DAY
     Route: 048
  31. NOZINAN [Interacting]
     Active Substance: LEVOMEPROMAZINE
     Dosage: UNK (50, 50, 100)
     Route: 065

REACTIONS (12)
  - Drug interaction [Fatal]
  - Megacolon [Fatal]
  - Toxicity to various agents [Fatal]
  - Drug level increased [Fatal]
  - Intestinal pseudo-obstruction [Fatal]
  - Haemoperitoneum [Fatal]
  - Gastrointestinal necrosis [Fatal]
  - Antipsychotic drug level increased [Unknown]
  - Intestinal haemorrhage [Fatal]
  - Intestinal obstruction [Fatal]
  - Constipation [Fatal]
  - Necrosis ischaemic [Fatal]

NARRATIVE: CASE EVENT DATE: 201308
